FAERS Safety Report 21195283 (Version 6)
Quarter: 2023Q2

REPORT INFORMATION
  Report Type: Report from Study
  Country: CA (occurrence: CA)
  Receive Date: 20220810
  Receipt Date: 20230527
  Transmission Date: 20230722
  Serious: Yes (Hospitalization)
  Sender: FDA-Public Use
  Company Number: CA-NOVARTISPH-NVSC2022CA172412

PATIENT
  Age: 64 Year
  Sex: Female

DRUGS (4)
  1. HYRIMOZ [Suspect]
     Active Substance: ADALIMUMAB-ADAZ
     Indication: Crohn^s disease
     Dosage: 40 MG
     Route: 058
     Dates: start: 20220516
  2. HYRIMOZ [Suspect]
     Active Substance: ADALIMUMAB-ADAZ
     Dosage: 40 MG (FORMULATION: PRE FILLED PEN)
     Route: 058
     Dates: start: 20220718
  3. HYRIMOZ [Suspect]
     Active Substance: ADALIMUMAB-ADAZ
     Dosage: 40 MG, EVERY 10 DAYS
     Route: 058
     Dates: start: 20221109
  4. HYRIMOZ [Suspect]
     Active Substance: ADALIMUMAB-ADAZ
     Dosage: 40 MG, EVERY 10 DAYS
     Route: 058
     Dates: start: 20221120

REACTIONS (10)
  - Post procedural complication [Unknown]
  - Faecal calprotectin increased [Recovering/Resolving]
  - Malaise [Unknown]
  - COVID-19 [Recovered/Resolved]
  - Headache [Unknown]
  - Diarrhoea [Unknown]
  - Pain [Unknown]
  - Fatigue [Unknown]
  - Pyrexia [Unknown]
  - Off label use [Unknown]

NARRATIVE: CASE EVENT DATE: 20221111
